FAERS Safety Report 19968760 (Version 2)
Quarter: 2022Q2

REPORT INFORMATION
  Report Type: Spontaneous
  Country: GB (occurrence: GB)
  Receive Date: 20211019
  Receipt Date: 20220404
  Transmission Date: 20220720
  Serious: Yes (Death, Hospitalization, Other)
  Sender: FDA-Public Use
  Company Number: GB-MYLANLABS-2021M1063829

PATIENT
  Sex: Female

DRUGS (1)
  1. CLOZARIL [Suspect]
     Active Substance: CLOZAPINE
     Indication: Schizophrenia
     Dosage: UNK
     Route: 048
     Dates: start: 20090319

REACTIONS (5)
  - Death [Fatal]
  - Hepatic cancer [Unknown]
  - Jaundice cholestatic [Unknown]
  - Liver function test increased [Unknown]
  - Off label use [Not Recovered/Not Resolved]
